FAERS Safety Report 8008979-6 (Version None)
Quarter: 2011Q4

REPORT INFORMATION
  Report Type: 
  Country: None (occurrence: None)
  Receive Date: 20111227
  Receipt Date: 20111221
  Transmission Date: 20120403
  Serious: No
  Sender: FDA-Public Use
  Company Number: US-PFIZER INC-2011310753

PATIENT
  Sex: Female
  Weight: 56.689 kg

DRUGS (2)
  1. ZYVOX [Suspect]
     Indication: KIDNEY INFECTION
     Dosage: 600 MG, 2X/DAY
     Route: 048
     Dates: start: 20111211, end: 20111220
  2. METOPROLOL [Concomitant]
     Indication: HYPERTENSION
     Dosage: ORAL TABLET TWO TIMES A DAY
     Route: 048

REACTIONS (5)
  - PHARYNGEAL ERYTHEMA [None]
  - BEDRIDDEN [None]
  - TONGUE DISORDER [None]
  - FEELING ABNORMAL [None]
  - DRUG INEFFECTIVE [None]
